FAERS Safety Report 21949603 (Version 1)
Quarter: 2023Q1

REPORT INFORMATION
  Report Type: Spontaneous
  Country: US (occurrence: US)
  Receive Date: 20230203
  Receipt Date: 20230203
  Transmission Date: 20230418
  Serious: No
  Sender: FDA-Public Use
  Company Number: US-RECORDATI RARE DISEASE INC.-2015000029

PATIENT

DRUGS (9)
  1. CYSTADANE [Suspect]
     Active Substance: BETAINE
     Indication: Vitamin B complex deficiency
     Dosage: UNKNOWN DOSE
     Route: 048
  2. CYSTADANE [Suspect]
     Active Substance: BETAINE
     Dosage: 1 G, QID
     Route: 048
     Dates: start: 20140807, end: 20150910
  3. CYSTADANE [Suspect]
     Active Substance: BETAINE
     Dosage: 1 G, QID
     Route: 048
     Dates: start: 20150911
  4. LEVOCARNITINE [Concomitant]
     Active Substance: LEVOCARNITINE
  5. METANX [Concomitant]
     Active Substance: LEVOMEFOLATE CALCIUM\METHYLCOBALAMIN\PYRIDOXAL PHOSPHATE ANHYDROUS
  6. VITAMIN B12 [Concomitant]
     Active Substance: CYANOCOBALAMIN
  7. METHIONINE [Concomitant]
     Active Substance: METHIONINE
  8. FERROUS SULFATE [Concomitant]
     Active Substance: FERROUS SULFATE
  9. VITAMIN D [Concomitant]
     Active Substance: VITAMIN D NOS

REACTIONS (3)
  - Vomiting [Recovered/Resolved]
  - Off label use [Not Recovered/Not Resolved]
  - Inappropriate schedule of product administration [Not Recovered/Not Resolved]

NARRATIVE: CASE EVENT DATE: 20150910
